FAERS Safety Report 21729391 (Version 1)
Quarter: 2022Q4

REPORT INFORMATION
  Report Type: Spontaneous
  Country: US (occurrence: US)
  Receive Date: 20221214
  Receipt Date: 20221214
  Transmission Date: 20230113
  Serious: Yes (Hospitalization)
  Sender: FDA-Public Use
  Company Number: US-002147023-NVSC2022US289438

PATIENT
  Sex: Female
  Weight: 57.153 kg

DRUGS (4)
  1. EVEROLIMUS [Suspect]
     Active Substance: EVEROLIMUS
     Indication: Product used for unknown indication
     Dosage: UNK
     Route: 065
  2. LENVIMA [Suspect]
     Active Substance: LENVATINIB
     Indication: Renal cancer
     Dosage: 18 MG, QD (TAKE 1 CAPSULE OF 10 MG WITH 2 CAPSULES OF 4, (1-10 MG, 2-4 MG, 5 DAY PACK COMM))
     Route: 065
  3. LENVIMA [Suspect]
     Active Substance: LENVATINIB
     Dosage: 14 MG, QD
     Route: 065
  4. BENICAR [Concomitant]
     Active Substance: OLMESARTAN MEDOXOMIL
     Indication: Product used for unknown indication
     Dosage: 20 MG
     Route: 065

REACTIONS (9)
  - Colitis [Unknown]
  - Sciatica [Unknown]
  - Neck pain [Unknown]
  - Back pain [Unknown]
  - Vision blurred [Unknown]
  - Visual impairment [Unknown]
  - Ocular discomfort [Unknown]
  - Limb discomfort [Unknown]
  - Fall [Unknown]
